FAERS Safety Report 15460187 (Version 1)
Quarter: 2018Q3

REPORT INFORMATION
  Report Type: Spontaneous
  Country: US (occurrence: US)
  Receive Date: 20180928
  Receipt Date: 20180928
  Transmission Date: 20181010
  Serious: Yes (Death)
  Sender: FDA-Public Use
  Company Number: None

PATIENT
  Age: 59 Year

DRUGS (2)
  1. AFINITOR [Suspect]
     Active Substance: EVEROLIMUS
     Indication: NEOPLASM MALIGNANT
     Route: 048
     Dates: start: 201805, end: 201809
  2. AFINITOR [Suspect]
     Active Substance: EVEROLIMUS
     Indication: RENAL DISORDER
     Route: 048
     Dates: start: 201805, end: 201809

REACTIONS (1)
  - Death [None]

NARRATIVE: CASE EVENT DATE: 20180907
